FAERS Safety Report 10304971 (Version 3)
Quarter: 2014Q4

REPORT INFORMATION
  Report Type: Spontaneous
  Country: IT (occurrence: IT)
  Receive Date: 20140715
  Receipt Date: 20141009
  Transmission Date: 20150528
  Serious: Yes (Hospitalization)
  Sender: FDA-Public Use
  Company Number: IT-ACCORD-024787

PATIENT
  Age: 42 Year
  Sex: Female
  Weight: 64.8 kg

DRUGS (6)
  1. ABILIFY [Suspect]
     Active Substance: ARIPIPRAZOLE
     Indication: PRODUCT USED FOR UNKNOWN INDICATION
     Dosage: ABILIFY ( OTSUKA PHARMACEUTICAL EUROPE LTD)
     Route: 048
     Dates: start: 20140617, end: 20140617
  2. QUETIAPINE [Suspect]
     Active Substance: QUETIAPINE
     Route: 048
     Dates: start: 20140617, end: 20140617
  3. DEPAKIN [Suspect]
     Active Substance: VALPROATE SODIUM
     Indication: PRODUCT USED FOR UNKNOWN INDICATION
     Dosage: RECIEVED 500MG  AND 300MG  DEPAKIN^CHRONO BLISTER 30 TABLETS
     Route: 048
     Dates: start: 20140617, end: 20140617
  4. VALDORM [Suspect]
     Active Substance: VALERIAN
     Indication: PRODUCT USED FOR UNKNOWN INDICATION
     Dosage: VALDORM (VALEAS INDUSTRIA CHIMICA E?FARMACEUTICA)
     Route: 048
     Dates: start: 20140617, end: 20140617
  5. CYMBALTA [Suspect]
     Active Substance: DULOXETINE HYDROCHLORIDE
     Indication: PRODUCT USED FOR UNKNOWN INDICATION
     Dosage: CYMBALTA - (ELI LILLY NEDERLAND BV)
     Route: 048
     Dates: start: 20140617, end: 20140617
  6. ZELDOX [Suspect]
     Active Substance: ZIPRASIDONE
     Indication: PRODUCT USED FOR UNKNOWN INDICATION
     Dosage: 30 TABLETS OF 20 MG AND 20 TABLETS OF 40MG

REACTIONS (3)
  - Suicide attempt [Unknown]
  - Drug abuse [Unknown]
  - Coma [Recovering/Resolving]

NARRATIVE: CASE EVENT DATE: 20140617
